FAERS Safety Report 7989387-0 (Version None)
Quarter: 2011Q4

REPORT INFORMATION
  Report Type: 
  Country: None (occurrence: None)
  Receive Date: 20111215
  Receipt Date: 20111206
  Transmission Date: 20120403
  Serious: Yes (Other)
  Sender: FDA-Public Use
  Company Number: 1000025992

PATIENT
  Age: 53 Year
  Sex: Male

DRUGS (3)
  1. VIIBRYD [Suspect]
     Indication: POST-TRAUMATIC STRESS DISORDER
     Dosage: 10 MG(10 MG, 1 IN 1 D), ORAL
     Route: 048
     Dates: start: 20111003, end: 20111009
  2. ALPRAZOLAM (ALPRAZOLAM) (TABLETS) (ALPRAZOLAM) [Concomitant]
  3. PERCOCET(OXYCODONE, ACETAMINOPHEN) (OXYCODONE, ACETAMINOPHEN) [Concomitant]

REACTIONS (12)
  - ANGER [None]
  - NAUSEA [None]
  - ABNORMAL DREAMS [None]
  - INSOMNIA [None]
  - ROAD TRAFFIC ACCIDENT [None]
  - BLOOD URINE PRESENT [None]
  - OFF LABEL USE [None]
  - FLANK PAIN [None]
  - DEPRESSION [None]
  - NEPHROLITHIASIS [None]
  - SUICIDAL IDEATION [None]
  - AGGRESSION [None]
